FAERS Safety Report 10237233 (Version 1)
Quarter: 2014Q1

REPORT INFORMATION
  Report Type: Spontaneous
  Country: US (occurrence: None)
  Receive Date: 20140306
  Receipt Date: 20140306
  Transmission Date: 20141002
  Serious: Yes (Other)
  Sender: FDA-Public Use
  Company Number: 163-21880-13124720

PATIENT
  Age: 66 Year
  Sex: Male

DRUGS (15)
  1. REVLIMID(LENALIDOMIDE)(20 MILLIGRAM, CAPSULES) [Suspect]
     Indication: PLASMA CELL MYELOMA
     Dosage: 20 MG, 21 IN 21 D, PO
     Route: 048
     Dates: start: 20130423
  2. DHEA(PRASTERONE)(UKNOWN) [Concomitant]
  3. LUNESTA [Concomitant]
  4. ACIDOPHILUS(LACTOBACILLUS ACIDOPHILUS)(UKNOWN) [Concomitant]
  5. RITUXAN(RITUXIMAB)(UKNOWN) [Concomitant]
  6. VITAMIN D (ERGOCALCIFEROL)(UKNOWN) [Concomitant]
  7. FISH OIL(FISH OIL)(UKNOWN) [Concomitant]
  8. VITAMIN B (VITAMIN B)(UKNOWN) [Concomitant]
  9. PANTOPRAZOLE(PANTOPRAZOLE)(UKNOWN) [Concomitant]
  10. ANDROGEL(TESTOSTERONE)(GEL) [Concomitant]
  11. VICOPROFEN(VICOPROFEN)(UKNOW) [Concomitant]
  12. NIASPAN ER (NICOTINIC ACID)(UKNOWN) [Concomitant]
  13. FENTANYL(FENTANYL)(POULTICE OR PATCH) [Concomitant]
  14. CRESTOR(ROSUVASTATIN)(UKNOWN) [Concomitant]
  15. BUPROPION HCL XL (BUPROPION HYDROCHLORIDE)(UKNOWN) [Concomitant]

REACTIONS (1)
  - Basal cell carcinoma [None]
